FAERS Safety Report 6839912-8 (Version None)
Quarter: 2010Q3

REPORT INFORMATION
  Report Type: 
  Country: None (occurrence: None)
  Receive Date: 20100714
  Receipt Date: 20100702
  Transmission Date: 20110219
  Serious: Yes (Hospitalization)
  Sender: FDA-Public Use
  Company Number: US-WYE-H15978810

PATIENT
  Sex: Male
  Weight: 68.1 kg

DRUGS (2)
  1. PRISTIQ [Suspect]
     Indication: DEPRESSION
     Dosage: ^2 OF THE 75 MG ONCE DAILY SAMPLES^
     Route: 048
     Dates: start: 20090101, end: 20100601
  2. PRISTIQ [Suspect]
     Indication: NEURALGIA

REACTIONS (4)
  - ABDOMINAL DISTENSION [None]
  - GASTROINTESTINAL SOUNDS ABNORMAL [None]
  - HAEMOGLOBIN DECREASED [None]
  - ULCER HAEMORRHAGE [None]
